FAERS Safety Report 16538639 (Version 1)
Quarter: 2019Q3

REPORT INFORMATION
  Report Type: Spontaneous
  Country: RU (occurrence: RU)
  Receive Date: 20190708
  Receipt Date: 20190708
  Transmission Date: 20191004
  Serious: Yes (Other)
  Sender: FDA-Public Use
  Company Number: RU-ROCHE-2346665

PATIENT
  Age: 54 Year
  Sex: Female

DRUGS (6)
  1. DOXORUBICIN [Suspect]
     Active Substance: DOXORUBICIN
     Indication: BREAST CANCER
     Dosage: 8 COURSES
     Route: 065
     Dates: start: 2012, end: 2013
  2. CISPLATIN. [Suspect]
     Active Substance: CISPLATIN
     Indication: BREAST CANCER
     Dosage: 8 COURSES
     Route: 065
     Dates: start: 2012, end: 2013
  3. PACLITAXEL. [Suspect]
     Active Substance: PACLITAXEL
     Indication: BREAST CANCER
     Route: 065
     Dates: start: 20140101
  4. VINORELBINE [Suspect]
     Active Substance: VINORELBINE TARTRATE
     Indication: BREAST CANCER
     Dosage: 4 COURSES DURING THE 12 MONTHS
     Route: 065
  5. TRASTUZUMAB. [Suspect]
     Active Substance: TRASTUZUMAB
     Indication: BREAST CANCER
     Route: 065
     Dates: start: 2012
  6. KADCYLA [Suspect]
     Active Substance: ADO-TRASTUZUMAB EMTANSINE
     Indication: BREAST CANCER
     Route: 065
     Dates: start: 20160601

REACTIONS (5)
  - Metastases to lymph nodes [Unknown]
  - Metastases to breast [Unknown]
  - Visual impairment [Recovered/Resolved]
  - Vertigo [Recovered/Resolved]
  - Neoplasm recurrence [Not Recovered/Not Resolved]

NARRATIVE: CASE EVENT DATE: 201404
